FAERS Safety Report 8814970 (Version 3)
Quarter: 2015Q2

REPORT INFORMATION
  Report Type: Report from Study
  Country: US (occurrence: US)
  Receive Date: 20120928
  Receipt Date: 20150403
  Transmission Date: 20150821
  Serious: Yes (Death)
  Sender: FDA-Public Use
  Company Number: US-ROCHE-1127926

PATIENT
  Sex: Female
  Weight: 49.9 kg

DRUGS (3)
  1. HERCEPTIN [Suspect]
     Active Substance: TRASTUZUMAB
     Indication: BREAST CANCER FEMALE
     Dosage: 205 MG WAS RECIEVED ON 01/JUN/2005
     Route: 042
     Dates: start: 20050601
  2. HERCEPTIN [Suspect]
     Active Substance: TRASTUZUMAB
     Dosage: LATER, HE RECIEVED 297 MG FOLLOWED BY 300 MG.
     Route: 042
  3. MOTRIN [Concomitant]
     Active Substance: IBUPROFEN

REACTIONS (2)
  - Death [Fatal]
  - Asthenia [Unknown]
